FAERS Safety Report 21676688 (Version 1)
Quarter: 2022Q4

REPORT INFORMATION
  Report Type: Spontaneous
  Country: US (occurrence: None)
  Receive Date: 20221202
  Receipt Date: 20221202
  Transmission Date: 20230113
  Serious: No
  Sender: FDA-Public Use
  Company Number: 2022A372578

PATIENT
  Age: 26 Year
  Sex: Female

DRUGS (6)
  1. BUDESONIDE [Suspect]
     Active Substance: BUDESONIDE
     Route: 055
  2. MESALAMINE [Suspect]
     Active Substance: MESALAMINE
  3. PREDNISONE [Suspect]
     Active Substance: PREDNISONE
  4. REMICADE [Concomitant]
     Active Substance: INFLIXIMAB
  5. HUMIRA [Concomitant]
     Active Substance: ADALIMUMAB
  6. ENTYVIO [Concomitant]
     Active Substance: VEDOLIZUMAB

REACTIONS (9)
  - Muscle spasms [Unknown]
  - Pain [Unknown]
  - Drug ineffective [Unknown]
  - Alopecia [Unknown]
  - Acne [Unknown]
  - Illness [Unknown]
  - Condition aggravated [Unknown]
  - Fatigue [Unknown]
  - Exposure during pregnancy [Unknown]
